FAERS Safety Report 14198930 (Version 1)
Quarter: 2017Q4

REPORT INFORMATION
  Report Type: Spontaneous
  Country: US (occurrence: None)
  Receive Date: 20171117
  Receipt Date: 20171117
  Transmission Date: 20180321
  Serious: No
  Sender: FDA-Public Use
  Company Number: None

PATIENT
  Age: 79 Year
  Sex: Female
  Weight: 78.02 kg

DRUGS (15)
  1. LEVOTHYROXINE. [Concomitant]
     Active Substance: LEVOTHYROXINE
  2. METOPROLOL TARTRATE. [Concomitant]
     Active Substance: METOPROLOL TARTRATE
  3. OMEPRAZOLE DR [Concomitant]
     Active Substance: OMEPRAZOLE
  4. LOSARTAN POTASSIUM. [Concomitant]
     Active Substance: LOSARTAN POTASSIUM
  5. CIMETIDINE [Concomitant]
     Active Substance: CIMETIDINE
  6. CLOPIDOGREL [Concomitant]
     Active Substance: CLOPIDOGREL BISULFATE
  7. ALLOPURINOL. [Suspect]
     Active Substance: ALLOPURINOL
     Indication: NEPHROLITHIASIS
     Route: 048
     Dates: start: 20160526, end: 20170824
  8. ALLOPURINOL. [Suspect]
     Active Substance: ALLOPURINOL
     Indication: PROPHYLAXIS
     Route: 048
     Dates: start: 20160526, end: 20170824
  9. ISOSORBIDE MN ER [Concomitant]
     Active Substance: ISOSORBIDE
  10. EFFIENT [Concomitant]
     Active Substance: PRASUGREL HYDROCHLORIDE
  11. VITAMIN D3 [Concomitant]
     Active Substance: CHOLECALCIFEROL
  12. CLINDAMYCIN PHOSPATE TOPICAL GEL [Concomitant]
  13. ASPIRIN EC [Concomitant]
     Active Substance: ASPIRIN
  14. NITROGLYCERIN. [Concomitant]
     Active Substance: NITROGLYCERIN
  15. GLUCOSAMINE CHONDROITIN [Concomitant]
     Active Substance: CHONDROITIN SULFATE (BOVINE)\GLUCOSAMINE HYDROCHLORIDE

REACTIONS (8)
  - Renal cyst [None]
  - Arthralgia [None]
  - Gait disturbance [None]
  - Arthritis [None]
  - Kidney enlargement [None]
  - Joint lock [None]
  - Swelling [None]
  - Pain [None]

NARRATIVE: CASE EVENT DATE: 20170417
